FAERS Safety Report 5204079-9 (Version None)
Quarter: 2007Q1

REPORT INFORMATION
  Report Type: 
  Country: None (occurrence: None)
  Receive Date: 20070110
  Receipt Date: 20051111
  Transmission Date: 20070707
  Serious: No
  Sender: FDA-Public Use
  Company Number: US-BRISTOL-MYERS SQUIBB COMPANY-13177613

PATIENT
  Age: 48 Year
  Sex: Female
  Weight: 77 kg

DRUGS (4)
  1. ABILIFY [Suspect]
     Indication: DEPRESSION
     Dosage: 5 MG DAILY INITIATED IN AUG-2005, INCREASED TO 10 MG DAILY AFTER 2 WEEKS
     Route: 048
     Dates: start: 20050801
  2. ABILIFY [Suspect]
     Indication: PARANOIA
     Dosage: 5 MG DAILY INITIATED IN AUG-2005, INCREASED TO 10 MG DAILY AFTER 2 WEEKS
     Route: 048
     Dates: start: 20050801
  3. LEXAPRO [Concomitant]
  4. IMIPRAMINE [Concomitant]

REACTIONS (2)
  - INSOMNIA [None]
  - MUSCLE SPASMS [None]
